FAERS Safety Report 6079359-8 (Version None)
Quarter: 2009Q1

REPORT INFORMATION
  Report Type: 
  Country: None (occurrence: None)
  Receive Date: 20090216
  Receipt Date: 20090211
  Transmission Date: 20090719
  Serious: Yes (Other)
  Sender: FDA-Public Use
  Company Number: TR-ABBOTT-09P-161-0502911-00

PATIENT
  Age: 51 Year
  Sex: Female
  Weight: 75 kg

DRUGS (2)
  1. HUMIRA [Suspect]
     Indication: PSORIATIC ARTHROPATHY
     Route: 058
     Dates: start: 20081202, end: 20090201
  2. ISONID [Concomitant]
     Indication: ANTIBIOTIC PROPHYLAXIS

REACTIONS (4)
  - C-REACTIVE PROTEIN INCREASED [None]
  - EYE INFECTION [None]
  - PUSTULAR PSORIASIS [None]
  - RED BLOOD CELL SEDIMENTATION RATE INCREASED [None]
